FAERS Safety Report 12182712 (Version 1)
Quarter: 2016Q1

REPORT INFORMATION
  Report Type: Spontaneous
  Country: US (occurrence: None)
  Receive Date: 20160315
  Receipt Date: 20160315
  Transmission Date: 20160526
  Serious: Yes (Other)
  Sender: FDA-Public Use
  Company Number: None

PATIENT
  Age: 68 Year
  Sex: Male
  Weight: 78.93 kg

DRUGS (20)
  1. DULOXETINE DR [Concomitant]
     Active Substance: DULOXETINE
  2. DONEPERIL [Concomitant]
  3. PREDNISOLONE AC [Suspect]
     Active Substance: PREDNISOLONE ACETATE
     Indication: RETINAL DETACHMENT
     Route: 031
     Dates: start: 20160310, end: 20160312
  4. TRAMADOL. [Concomitant]
     Active Substance: TRAMADOL
  5. PRESERVISION [Concomitant]
     Active Substance: MINERALS\VITAMINS
  6. ALKA-SELTZER PLUS NOS [Concomitant]
     Active Substance: ACETAMINOPHEN\ASPIRIN\CHLORPHENIRAMINE MALEATE\DEXTROMETHORPHAN HYDROBROMIDE\DIPHENHYDRAMINE HYDROCHLORIDE\DOXYLAMINE SUCCINATE\PHENYLEPHRINE BITARTRATE\PHENYLEPHRINE HYDROCHLORIDE
  7. LEVOTHYROXINE. [Concomitant]
     Active Substance: LEVOTHYROXINE
  8. CENTRUM ULT MEN^S VITAMIN/MINERAL [Concomitant]
  9. VIAMIN E [Concomitant]
  10. ALPRAZOLAM. [Concomitant]
     Active Substance: ALPRAZOLAM
  11. GLUCOSAMINE CHONDROITIN/MSM [Concomitant]
  12. ROLAIDS [Concomitant]
     Active Substance: CALCIUM CARBONATE\MAGNESIUM HYDROXIDE
  13. NAPROXEN. [Concomitant]
     Active Substance: NAPROXEN
  14. LATANOPROST. [Concomitant]
     Active Substance: LATANOPROST
  15. METOPROLOL TARTRATE. [Concomitant]
     Active Substance: METOPROLOL TARTRATE
  16. GEMFIBROZIL. [Concomitant]
     Active Substance: GEMFIBROZIL
  17. HYDROCHLOROTHIAZIDE. [Concomitant]
     Active Substance: HYDROCHLOROTHIAZIDE
  18. CLONIDINE. [Concomitant]
     Active Substance: CLONIDINE
  19. VITAMIN D [Concomitant]
     Active Substance: CHOLECALCIFEROL
  20. VITAMIN B12 [Concomitant]
     Active Substance: CYANOCOBALAMIN

REACTIONS (9)
  - Feeling jittery [None]
  - Tremor [None]
  - Nervousness [None]
  - Rash [None]
  - Dyskinesia [None]
  - Pruritus [None]
  - Extrasystoles [None]
  - Hypotonia [None]
  - Eye pain [None]

NARRATIVE: CASE EVENT DATE: 20160311
